FAERS Safety Report 11522510 (Version 1)
Quarter: 2015Q3

REPORT INFORMATION
  Report Type: Spontaneous
  Country: US (occurrence: US)
  Receive Date: 20150918
  Receipt Date: 20150918
  Transmission Date: 20151125
  Serious: Yes (Hospitalization)
  Sender: FDA-Public Use
  Company Number: US-ROCHE-742972

PATIENT
  Sex: Male
  Weight: 104.3 kg

DRUGS (4)
  1. PEGASYS [Suspect]
     Active Substance: PEGINTERFERON ALFA-2A
     Route: 058
     Dates: start: 201004, end: 20101109
  2. COPEGUS [Suspect]
     Active Substance: RIBAVIRIN
     Indication: HEPATITIS C
     Route: 048
  3. COPEGUS [Suspect]
     Active Substance: RIBAVIRIN
     Route: 048
     Dates: start: 201004, end: 20101109
  4. PEGASYS [Suspect]
     Active Substance: PEGINTERFERON ALFA-2A
     Indication: HEPATITIS C
     Route: 058

REACTIONS (8)
  - Loss of consciousness [Recovered/Resolved]
  - Skin ulcer [Not Recovered/Not Resolved]
  - Tremor [Unknown]
  - Fall [Unknown]
  - Hot flush [Unknown]
  - Cardiac failure congestive [Unknown]
  - Anaemia [Not Recovered/Not Resolved]
  - Rash [Unknown]
